FAERS Safety Report 14763377 (Version 1)
Quarter: 2018Q2

REPORT INFORMATION
  Report Type: Spontaneous
  Country: JP (occurrence: JP)
  Receive Date: 20180416
  Receipt Date: 20180416
  Transmission Date: 20180711
  Serious: Yes (Other)
  Sender: FDA-Public Use
  Company Number: JP-ASPEN-JPG2018JP003401

PATIENT

DRUGS (2)
  1. FENTANYL. [Suspect]
     Active Substance: FENTANYL
     Indication: COMPLEX REGIONAL PAIN SYNDROME
     Dosage: UNK
     Route: 065
  2. DEXAMETHASONE. [Suspect]
     Active Substance: DEXAMETHASONE
     Indication: COMPLEX REGIONAL PAIN SYNDROME
     Dosage: UNK
     Route: 061

REACTIONS (1)
  - Adrenal insufficiency [Not Recovered/Not Resolved]
